FAERS Safety Report 6336888-7 (Version None)
Quarter: 2009Q3

REPORT INFORMATION
  Report Type: 
  Country: None (occurrence: None)
  Receive Date: 20090901
  Receipt Date: 20090820
  Transmission Date: 20100115
  Serious: Yes (Other)
  Sender: FDA-Public Use
  Company Number: US-ROCHE-651824

PATIENT
  Sex: Female

DRUGS (3)
  1. PEGASYS [Suspect]
     Indication: HEPATITIS C
     Dosage: FORM: PRE-FILLED SYRINGE, OFF THE MEDICINE FOR 3 WEEKS.
     Route: 065
     Dates: start: 20090403
  2. PEGASYS [Suspect]
     Route: 065
     Dates: start: 20090806
  3. RIBAVIRIN [Suspect]
     Indication: HEPATITIS C
     Route: 065
     Dates: start: 20090403

REACTIONS (2)
  - FACIAL PALSY [None]
  - WHITE BLOOD CELL COUNT DECREASED [None]
